FAERS Safety Report 6613257-3 (Version None)
Quarter: 2010Q1

REPORT INFORMATION
  Report Type: 
  Country: None (occurrence: None)
  Receive Date: 20100225
  Receipt Date: 20100208
  Transmission Date: 20100710
  Serious: Yes (Hospitalization, Other)
  Sender: FDA-Public Use
  Company Number: 427518

PATIENT
  Age: 68 Year
  Sex: Female

DRUGS (11)
  1. FENTANYL-100 [Suspect]
     Dates: start: 20090727
  2. MIDAZOLAM HYDROCHLORIDE [Suspect]
     Dates: start: 20090721
  3. PROPOFOL [Suspect]
     Dates: start: 20090721
  4. (INVESTIGATIONAL DRUG) [Suspect]
     Indication: TRANSITIONAL CELL CARCINOMA
     Dosage: 25 MG, INTRAVENOUS
     Route: 042
     Dates: start: 20090128, end: 20090520
  5. (INVESTIGATIONAL DRUG) [Suspect]
     Indication: TRANSITIONAL CELL CARCINOMA
     Dosage: 20 MG, 1 WEEK, INTRAVENOUS
     Route: 042
     Dates: start: 20090527
  6. (GENTAMICIN) [Concomitant]
  7. IBUPROFEN [Concomitant]
  8. OMEPRAZOLE [Concomitant]
  9. TRIMETHOPRIM [Concomitant]
  10. ONDANSETRON [Concomitant]
  11. (PIRITON) [Concomitant]

REACTIONS (10)
  - BLOOD ALBUMIN DECREASED [None]
  - BLOOD CALCIUM DECREASED [None]
  - BLOOD FIBRINOGEN INCREASED [None]
  - INFUSION SITE PAIN [None]
  - MEAN CELL HAEMOGLOBIN DECREASED [None]
  - NEUTROPENIA [None]
  - PULMONARY EMBOLISM [None]
  - PYREXIA [None]
  - RED BLOOD CELL COUNT DECREASED [None]
  - VOMITING [None]
